FAERS Safety Report 14893701 (Version 1)
Quarter: 2018Q2

REPORT INFORMATION
  Report Type: Spontaneous
  Country: US (occurrence: US)
  Receive Date: 20180514
  Receipt Date: 20180514
  Transmission Date: 20180711
  Serious: No
  Sender: FDA-Public Use
  Company Number: US-STRONGBRIDGE BIOPHARMA-2018-STR-000140

PATIENT
  Age: 20 Year
  Sex: Male

DRUGS (2)
  1. KEVEYIS [Suspect]
     Active Substance: DICHLORPHENAMIDE
     Indication: MUSCULAR WEAKNESS
     Dosage: 50 MG, BID
     Route: 048
     Dates: start: 20170713
  2. KEVEYIS [Suspect]
     Active Substance: DICHLORPHENAMIDE
     Dosage: 1 TABLET DAILY PLUS 1 TABLET AS NEEDED FOR MUSCLE WEAKNESS
     Route: 048

REACTIONS (3)
  - Intentional product use issue [Unknown]
  - Disease recurrence [Not Recovered/Not Resolved]
  - Muscular weakness [Unknown]
